FAERS Safety Report 6089432-6 (Version None)
Quarter: 2009Q1

REPORT INFORMATION
  Report Type: 
  Country: None (occurrence: None)
  Receive Date: 20090224
  Receipt Date: 20090217
  Transmission Date: 20090719
  Serious: Yes (Hospitalization, Other)
  Sender: FDA-Public Use
  Company Number: CA-ELI_LILLY_AND_COMPANY-CA200807003982

PATIENT
  Sex: Male

DRUGS (20)
  1. HUMALOG [Suspect]
     Indication: DIABETES MELLITUS
     Dosage: 22 U, 3/D
  2. HUMALOG [Suspect]
     Dosage: 18 U, 3/D
  3. HUMALOG [Suspect]
     Dosage: 12 U, 2/D
  4. FOLIC ACID [Concomitant]
  5. NOVOTRIPTYN [Concomitant]
  6. METHOTREXATE [Concomitant]
     Indication: RHEUMATOID ARTHRITIS
     Dosage: UNK, UNK
     Dates: start: 20060627
  7. SIMVASTATIN [Concomitant]
  8. ASAPHEN [Concomitant]
  9. FLOVENT [Concomitant]
  10. NAPROXEN [Concomitant]
  11. LANTUS [Concomitant]
     Dosage: 22 U, EACH EVENING
     Dates: start: 20051101
  12. LANTUS [Concomitant]
     Dosage: 30 U, UNK
  13. LANTUS [Concomitant]
     Dosage: 38 U, UNK
  14. LANTUS [Concomitant]
     Dosage: 34 U, UNK
  15. LEVEMIR [Concomitant]
     Indication: TYPE 1 DIABETES MELLITUS
     Dosage: 70 U, EACH EVENING
  16. LEVEMIR [Concomitant]
     Dosage: 60 U, UNK
  17. NOVORAPID [Concomitant]
     Dosage: 30 U, 3/D
  18. NOVORAPID [Concomitant]
     Dosage: 22 U, 3/D
  19. NOVORAPID [Concomitant]
     Dosage: 30 U, 2/D
  20. ARAVA [Concomitant]

REACTIONS (43)
  - AGGRESSION [None]
  - AMNESIA [None]
  - ANGER [None]
  - ANXIETY [None]
  - APALLIC SYNDROME [None]
  - ARTHRALGIA [None]
  - ARTHROPATHY [None]
  - ASTHENIA [None]
  - BODY TEMPERATURE INCREASED [None]
  - CARBOHYDRATE METABOLISM DISORDER [None]
  - CONFUSIONAL STATE [None]
  - CONVULSION [None]
  - DECREASED INTEREST [None]
  - DEPRESSED MOOD [None]
  - DIABETES MELLITUS INADEQUATE CONTROL [None]
  - DYSARTHRIA [None]
  - DYSPEPSIA [None]
  - ELECTROCARDIOGRAM T WAVE AMPLITUDE DECREASED [None]
  - EMOTIONAL DISTRESS [None]
  - FACIAL PALSY [None]
  - FEAR [None]
  - GAIT DISTURBANCE [None]
  - GASTRIC HYPOMOTILITY [None]
  - HEADACHE [None]
  - HYPERGLYCAEMIA [None]
  - HYPOGLYCAEMIA [None]
  - HYPOGLYCAEMIA UNAWARENESS [None]
  - HYPOGLYCAEMIC COMA [None]
  - INCORRECT DOSE ADMINISTERED [None]
  - INSOMNIA [None]
  - INTERVERTEBRAL DISC DISORDER [None]
  - LIMB INJURY [None]
  - LOSS OF CONSCIOUSNESS [None]
  - MALAISE [None]
  - MOVEMENT DISORDER [None]
  - MUSCULOSKELETAL PAIN [None]
  - OEDEMA PERIPHERAL [None]
  - ORAL DISORDER [None]
  - RHEUMATOID ARTHRITIS [None]
  - SWELLING FACE [None]
  - SYNOVITIS [None]
  - VISION BLURRED [None]
  - WEIGHT INCREASED [None]
